FAERS Safety Report 9546986 (Version 1)
Quarter: 2013Q2

REPORT INFORMATION
  Report Type: Spontaneous
  Country: US (occurrence: None)
  Receive Date: 20130616
  Receipt Date: 20130616
  Transmission Date: 20140414
  Serious: Yes (Other)
  Sender: FDA-Public Use
  Company Number: 163-POMAL-13050496

PATIENT
  Age: 63 Year
  Sex: Male
  Weight: 87.8 kg

DRUGS (5)
  1. POMALYST [Suspect]
     Indication: PLASMA CELL MYELOMA
     Dosage: 4MG 21 IN 21 D, PO
     Route: 048
     Dates: start: 201303, end: 201305
  2. FLOMAX [Concomitant]
  3. COREG (CARVEDILOL) [Concomitant]
  4. ALLOPURINOL (ALLOPURINOL) [Concomitant]
  5. ACYCLOVIR (ACICLOVIR) [Concomitant]

REACTIONS (1)
  - Plasma cell myeloma [None]
